FAERS Safety Report 8965569 (Version 1)
Quarter: 2012Q4

REPORT INFORMATION
  Report Type: Spontaneous
  Country: GB (occurrence: None)
  Receive Date: 20121205
  Receipt Date: 20121205
  Transmission Date: 20130627
  Serious: Yes (Hospitalization)
  Sender: FDA-Public Use
  Company Number: CL-451-2012

PATIENT
  Age: 54 Year

DRUGS (11)
  1. CIPROFLOXACIN [Suspect]
     Route: 048
     Dates: start: 20121027, end: 20121028
  2. NITROFURANTOIN [Suspect]
     Route: 048
     Dates: start: 20121028, end: 20121029
  3. CHLORPHENAMINE [Concomitant]
  4. COLESTYRAMINE [Concomitant]
  5. TOPIRAMATE [Concomitant]
  6. CYCLIZINE [Concomitant]
  7. DOMPERIDONE [Concomitant]
  8. METOCLOPRAMIDE [Concomitant]
  9. PARACETAMOL [Concomitant]
  10. OMEPRAZOLE [Concomitant]
  11. LOPERAMIDE [Concomitant]

REACTIONS (1)
  - Drug reaction with eosinophilia and systemic symptoms [None]
